FAERS Safety Report 13000528 (Version 1)
Quarter: 2016Q4

REPORT INFORMATION
  Report Type: Spontaneous
  Country: FR (occurrence: FR)
  Receive Date: 20161206
  Receipt Date: 20161206
  Transmission Date: 20170207
  Serious: Yes (Life-Threatening)
  Sender: FDA-Public Use
  Company Number: FR-ROCHE-1862610

PATIENT
  Sex: Male

DRUGS (9)
  1. METOCLOPRAMIDE. [Concomitant]
     Active Substance: METOCLOPRAMIDE
  2. PREDNISONE. [Concomitant]
     Active Substance: PREDNISONE
  3. VELCADE [Concomitant]
     Active Substance: BORTEZOMIB
  4. POLARAMINE [Concomitant]
     Active Substance: DEXCHLORPHENIRAMINE MALEATE
  5. MESNA. [Concomitant]
     Active Substance: MESNA
  6. MABTHERA [Suspect]
     Active Substance: RITUXIMAB
     Indication: NON-HODGKIN^S LYMPHOMA
     Dosage: TREATMENT LENGTH = 2 CYCLES
     Route: 042
     Dates: start: 20160705, end: 20160823
  7. ENDOXAN [Concomitant]
     Active Substance: CYCLOPHOSPHAMIDE
  8. ADRIAMYCIN [Concomitant]
     Active Substance: DOXORUBICIN HYDROCHLORIDE
  9. ONDANSETRON [Concomitant]
     Active Substance: ONDANSETRON

REACTIONS (5)
  - Product use issue [Unknown]
  - Bronchospasm [Unknown]
  - Shock [Unknown]
  - Off label use [Unknown]
  - Thrombocytopenia [Recovered/Resolved]

NARRATIVE: CASE EVENT DATE: 20160706
